FAERS Safety Report 24961141 (Version 1)
Quarter: 2025Q1

REPORT INFORMATION
  Report Type: Spontaneous
  Country: PL (occurrence: PL)
  Receive Date: 20250212
  Receipt Date: 20250212
  Transmission Date: 20250409
  Serious: Yes (Hospitalization)
  Sender: MYLAN
  Company Number: None

PATIENT
  Age: 81 Year
  Sex: Female

DRUGS (2)
  1. MIRTAZAPINE [Suspect]
     Active Substance: MIRTAZAPINE
     Indication: Bipolar I disorder
     Dosage: 15 MILLIGRAM, QD (THERAPY ONGOING)
     Route: 048
  2. SERTRALINE HYDROCHLORIDE [Suspect]
     Active Substance: SERTRALINE HYDROCHLORIDE
     Indication: Major depression
     Dosage: 50 MILLIGRAM, BID (THERAPY ONGOING)
     Route: 048

REACTIONS (3)
  - Pelvic fracture [Unknown]
  - Fractured sacrum [Unknown]
  - Fall [Unknown]

NARRATIVE: CASE EVENT DATE: 20210415
